FAERS Safety Report 26051083 (Version 1)
Quarter: 2025Q4

REPORT INFORMATION
  Report Type: Report from Study
  Country: CA (occurrence: CA)
  Receive Date: 20251117
  Receipt Date: 20251117
  Transmission Date: 20260118
  Serious: Yes (Other)
  Sender: ABBVIE
  Company Number: CA-ABBVIE-6544593

PATIENT
  Age: 81 Year
  Sex: Female
  Weight: 54.4 kg

DRUGS (1)
  1. SKYRIZI [Suspect]
     Active Substance: RISANKIZUMAB-RZAA
     Indication: Crohn^s disease
     Dosage: ?LDD: OCT 31 2025
     Route: 042

REACTIONS (10)
  - Loss of consciousness [Unknown]
  - Decreased appetite [Unknown]
  - Diarrhoea [Not Recovered/Not Resolved]
  - Feeling abnormal [Unknown]
  - Abdominal pain [Unknown]
  - Fall [Recovered/Resolved]
  - Rash papular [Unknown]
  - Limb mass [Unknown]
  - Pruritus [Unknown]
  - Fall [Not Recovered/Not Resolved]

NARRATIVE: CASE EVENT DATE: 20250101
